FAERS Safety Report 10458005 (Version 1)
Quarter: 2014Q3

REPORT INFORMATION
  Report Type: Spontaneous
  Country: PL (occurrence: PL)
  Receive Date: 20140916
  Receipt Date: 20140916
  Transmission Date: 20150326
  Serious: Yes (Death, Other)
  Sender: FDA-Public Use
  Company Number: PHHY2014PL116076

PATIENT
  Age: 50 Year
  Sex: Male

DRUGS (18)
  1. PAMIDRONATE [Suspect]
     Active Substance: PAMIDRONATE DISODIUM
     Indication: CHEMOTHERAPY
     Dosage: 90 MG, QMO
  2. PAZOPANIB [Concomitant]
     Active Substance: PAZOPANIB
     Indication: RENAL CELL CARCINOMA
  3. VINBLASTINE SULFATE. [Suspect]
     Active Substance: VINBLASTINE SULFATE
     Indication: CHEMOTHERAPY
     Dosage: 4 MG/M2, UNK
     Route: 042
  4. SORAFENIB [Suspect]
     Active Substance: SORAFENIB
     Indication: RENAL CELL CARCINOMA
  5. INTERFERON ALFA-2A [Suspect]
     Active Substance: INTERFERON ALFA-2A
     Indication: CHEMOTHERAPY
     Dates: start: 200309, end: 200401
  6. INTERFERON ALFA-2A [Suspect]
     Active Substance: INTERFERON ALFA-2A
     Indication: RENAL CELL CARCINOMA
     Dates: start: 200704
  7. SUNITINIB [Suspect]
     Active Substance: SUNITINIB
     Indication: CHEMOTHERAPY
     Dosage: 50 MG, 4/2 WEEKS
     Dates: start: 200711
  8. EVEROLIMUS [Suspect]
     Active Substance: EVEROLIMUS
     Indication: CHEMOTHERAPY
     Dosage: 10 MG/DAY
  9. VINBLASTINE SULFATE. [Suspect]
     Active Substance: VINBLASTINE SULFATE
     Indication: RENAL CELL CARCINOMA
  10. INTERLEUKIN-2 [Suspect]
     Active Substance: ALDESLEUKIN
     Indication: CHEMOTHERAPY
  11. EVEROLIMUS [Suspect]
     Active Substance: EVEROLIMUS
     Indication: RENAL CELL CARCINOMA
  12. ZOLEDRONATE [Suspect]
     Active Substance: ZOLEDRONIC ACID
     Indication: RENAL CELL CARCINOMA
     Route: 065
  13. INTERLEUKIN-2 [Suspect]
     Active Substance: ALDESLEUKIN
     Indication: RENAL CELL CARCINOMA
     Dosage: 4 MG/M2, UNK
     Route: 058
     Dates: start: 200309, end: 200401
  14. PAMIDRONATE [Suspect]
     Active Substance: PAMIDRONATE DISODIUM
     Indication: RENAL CELL CARCINOMA
  15. SUNITINIB [Suspect]
     Active Substance: SUNITINIB
     Indication: RENAL CELL CARCINOMA
     Dosage: 37.5 MG, UNK
  16. PAZOPANIB [Concomitant]
     Active Substance: PAZOPANIB
     Indication: CHEMOTHERAPY
     Dates: start: 201204
  17. ZOLEDRONATE [Suspect]
     Active Substance: ZOLEDRONIC ACID
     Indication: CHEMOTHERAPY
  18. SORAFENIB [Suspect]
     Active Substance: SORAFENIB
     Indication: CHEMOTHERAPY
     Dosage: 200 MG, BID
     Dates: start: 201107, end: 2012

REACTIONS (23)
  - Cardiac neoplasm malignant [Unknown]
  - Metastases to kidney [Unknown]
  - Tumour necrosis [Unknown]
  - Chest pain [Unknown]
  - Muscular weakness [Unknown]
  - Metastases to bone [Unknown]
  - Supraventricular extrasystoles [Unknown]
  - Drug intolerance [Unknown]
  - Metastases to lung [Unknown]
  - Arthralgia [Unknown]
  - Myalgia [Unknown]
  - Peripheral sensory neuropathy [Unknown]
  - Mucosal inflammation [Unknown]
  - Pyrexia [Unknown]
  - Renal cell carcinoma [Unknown]
  - Condition aggravated [Unknown]
  - Palmar-plantar erythrodysaesthesia syndrome [Unknown]
  - Death [Fatal]
  - Atrial fibrillation [Unknown]
  - Malignant neoplasm progression [Unknown]
  - Metastases to skin [Unknown]
  - Bone pain [Unknown]
  - Electrocardiogram ST segment elevation [Unknown]

NARRATIVE: CASE EVENT DATE: 201104
